FAERS Safety Report 4529397-9 (Version None)
Quarter: 2004Q4

REPORT INFORMATION
  Report Type: 
  Country: None (occurrence: None)
  Receive Date: 20041214
  Receipt Date: 20041201
  Transmission Date: 20050328
  Serious: No
  Sender: FDA-Public Use
  Company Number: 2004PK02050

PATIENT
  Age: 17 Year
  Sex: Female

DRUGS (18)
  1. NEXIUM [Suspect]
     Dosage: 40 MG DAILY
  2. TRAMAL [Suspect]
     Indication: PAIN
     Dosage: 200 MG DAILY PO
     Route: 048
     Dates: end: 20041112
  3. SIRDALUD [Suspect]
     Dosage: 8 MG DAILY PO
     Route: 048
     Dates: end: 20041112
  4. ZOLOFT [Suspect]
     Indication: DEPRESSION
  5. BRUFEN [Suspect]
     Indication: PAIN
     Dosage: 1200 MG DAILY PO
     Route: 048
  6. TAZOBAC [Suspect]
     Indication: PSEUDOMONAS INFECTION
     Dosage: 13.5 G DAILY IV
     Route: 042
     Dates: start: 20041022, end: 20041115
  7. TAZOBAC [Suspect]
     Indication: SKIN NECROSIS
     Dosage: 13.5 G DAILY IV
     Route: 042
     Dates: start: 20041022, end: 20041115
  8. GENTAMICIN [Suspect]
     Indication: PSEUDOMONAS INFECTION
     Dosage: 160 MG DAILY IV
     Route: 042
     Dates: start: 20041022
  9. GENTAMICIN [Suspect]
     Indication: SKIN NECROSIS
     Dosage: 160 MG DAILY IV
     Route: 042
     Dates: start: 20041022
  10. NEURONTIN [Concomitant]
  11. RIVOTRIL [Concomitant]
  12. MORPHINE SULFATE [Concomitant]
  13. DAFALGAN [Concomitant]
  14. TEMESTA [Concomitant]
  15. BACTRIM [Concomitant]
  16. FRAXIPARIN [Concomitant]
  17. BENERVA [Concomitant]
  18. BECOZYME FORTE [Concomitant]

REACTIONS (15)
  - AGITATION [None]
  - ASTHENIA [None]
  - COORDINATION ABNORMAL [None]
  - DYSAESTHESIA [None]
  - HYPERAESTHESIA [None]
  - MOTOR DYSFUNCTION [None]
  - PAIN IN EXTREMITY [None]
  - POSTOPERATIVE INFECTION [None]
  - PSEUDOMONAS INFECTION [None]
  - PYREXIA [None]
  - SEDATION [None]
  - SEROTONIN SYNDROME [None]
  - SKIN NECROSIS [None]
  - SOMNOLENCE [None]
  - TREMOR [None]
